FAERS Safety Report 4648430-7 (Version None)
Quarter: 2005Q2

REPORT INFORMATION
  Report Type: 
  Country: None (occurrence: None)
  Receive Date: 20050427
  Receipt Date: 20050413
  Transmission Date: 20051028
  Serious: Yes (Hospitalization)
  Sender: FDA-Public Use
  Company Number: FR_050406224

PATIENT
  Age: 33 Year
  Sex: Female

DRUGS (4)
  1. CEFACLOR [Suspect]
     Indication: BRONCHITIS
     Dosage: 500 MG DAY
     Dates: start: 20040924, end: 20040924
  2. RESPILENE (PHOLCODINE) [Concomitant]
  3. HEXAPNEUMINE [Concomitant]
  4. DOLKO (PARACETAMOL) [Concomitant]

REACTIONS (8)
  - BASOPHIL COUNT ABNORMAL [None]
  - DYSPNOEA [None]
  - LARYNGEAL DISORDER [None]
  - MALAISE [None]
  - PRURITUS [None]
  - RASH ERYTHEMATOUS [None]
  - SKIN TEST POSITIVE [None]
  - VOMITING [None]
